FAERS Safety Report 7206381-8 (Version None)
Quarter: 2011Q1

REPORT INFORMATION
  Report Type: 
  Country: None (occurrence: None)
  Receive Date: 20110103
  Receipt Date: 20110103
  Transmission Date: 20110831
  Serious: Yes (Life-Threatening, Hospitalization, Other)
  Sender: FDA-Public Use
  Company Number: PHHO2007DE12202

PATIENT
  Sex: Male
  Weight: 84 kg

DRUGS (6)
  1. CERTICAN [Suspect]
     Indication: CONGENITAL CYSTIC KIDNEY DISEASE
     Dosage: UNK
     Route: 048
     Dates: start: 20070303, end: 20070718
  2. ASPIRIN [Concomitant]
  3. CANDESARTAN [Concomitant]
  4. MORPHINE [Suspect]
  5. NEBIVOLOL [Concomitant]
  6. OMACOR [Concomitant]

REACTIONS (25)
  - MYOCARDITIS [None]
  - CONFUSIONAL STATE [None]
  - MYALGIA [None]
  - RENAL IMPAIRMENT [None]
  - PERSONALITY CHANGE [None]
  - BLOOD CREATINE PHOSPHOKINASE INCREASED [None]
  - C-REACTIVE PROTEIN INCREASED [None]
  - HYPOALBUMINAEMIA [None]
  - OEDEMA PERIPHERAL [None]
  - NEPHROTIC SYNDROME [None]
  - PAIN IN EXTREMITY [None]
  - MYOSITIS [None]
  - CHOLECYSTITIS [None]
  - PERICARDITIS [None]
  - TROPONIN I INCREASED [None]
  - POLYARTHRITIS [None]
  - DIARRHOEA [None]
  - RENAL TUBULAR NECROSIS [None]
  - RENAL FAILURE ACUTE [None]
  - CEREBRAL ATROPHY [None]
  - TROPONIN T INCREASED [None]
  - PERICARDIAL EFFUSION [None]
  - ARTHROPOD STING [None]
  - MUSCULAR WEAKNESS [None]
  - PROTEINURIA [None]
